FAERS Safety Report 25163112 (Version 2)
Quarter: 2025Q2

REPORT INFORMATION
  Report Type: Spontaneous
  Country: US (occurrence: US)
  Receive Date: 20250404
  Receipt Date: 20250423
  Transmission Date: 20250716
  Serious: Yes (Death)
  Sender: MERCK SHARP & DOHME LLC
  Company Number: US-009507513-2262822

PATIENT
  Age: 70 Year
  Sex: Female
  Weight: 97.522 kg

DRUGS (20)
  1. WINREVAIR [Suspect]
     Active Substance: SOTATERCEPT-CSRK
     Route: 065
     Dates: end: 2025
  2. WINREVAIR [Suspect]
     Active Substance: SOTATERCEPT-CSRK
  3. WINREVAIR [Suspect]
     Active Substance: SOTATERCEPT-CSRK
  4. WINREVAIR [Suspect]
     Active Substance: SOTATERCEPT-CSRK
  5. TYVASO DPI [Suspect]
     Active Substance: TREPROSTINIL
     Indication: Pulmonary arterial hypertension
     Route: 055
     Dates: start: 20250210
  6. TOPIRAMATE [Concomitant]
     Active Substance: TOPIRAMATE
  7. AMLODIPINE BESYLATE [Concomitant]
     Active Substance: AMLODIPINE BESYLATE
  8. LORAZEPAM [Concomitant]
     Active Substance: LORAZEPAM
  9. POTASSIUM CHLORIDE [Concomitant]
     Active Substance: POTASSIUM CHLORIDE
  10. TADALAFIL [Concomitant]
     Active Substance: TADALAFIL
  11. VITAMIN D3 [Concomitant]
     Active Substance: CHOLECALCIFEROL
  12. CALCIUM ASCORBATE [Concomitant]
     Active Substance: CALCIUM ASCORBATE
  13. MELATONIN [Concomitant]
     Active Substance: MELATONIN
  14. ATORVASTATIN CALCIUM [Concomitant]
     Active Substance: ATORVASTATIN CALCIUM
  15. VENTOLIN HFA [Concomitant]
     Active Substance: ALBUTEROL SULFATE
  16. OXYGEN [Concomitant]
     Active Substance: OXYGEN
  17. FUROSEMIDE [Concomitant]
     Active Substance: FUROSEMIDE
  18. LORATADINE [Concomitant]
     Active Substance: LORATADINE
  19. MUCINEX [Concomitant]
     Active Substance: GUAIFENESIN
  20. SYMBICORT [Concomitant]
     Active Substance: BUDESONIDE\FORMOTEROL FUMARATE DIHYDRATE

REACTIONS (2)
  - Death [Fatal]
  - Haemoglobin increased [Unknown]

NARRATIVE: CASE EVENT DATE: 20250201
